FAERS Safety Report 5590663-X (Version None)
Quarter: 2008Q1

REPORT INFORMATION
  Report Type: 
  Country: None (occurrence: None)
  Receive Date: 20080114
  Receipt Date: 20080108
  Transmission Date: 20080703
  Serious: Yes (Other)
  Sender: FDA-Public Use
  Company Number: US-MERCK-0711USA00179

PATIENT
  Sex: Female

DRUGS (2)
  1. MAXALT [Suspect]
     Indication: MIGRAINE
     Route: 048
  2. NARCAN [Suspect]
     Route: 042

REACTIONS (2)
  - CONVULSION [None]
  - ELECTROCARDIOGRAM T WAVE ABNORMAL [None]
